FAERS Safety Report 6894133-8 (Version None)
Quarter: 2010Q3

REPORT INFORMATION
  Report Type: 
  Country: None (occurrence: None)
  Receive Date: 20100802
  Receipt Date: 20100726
  Transmission Date: 20110219
  Serious: Yes (Hospitalization)
  Sender: FDA-Public Use
  Company Number: BR-JNJFOC-20100708939

PATIENT
  Age: 78 Year
  Sex: Male

DRUGS (4)
  1. HALDOL [Suspect]
     Indication: DEMENTIA
     Route: 065
  2. MEMANTINE HCL [Suspect]
     Indication: PRODUCT USED FOR UNKNOWN INDICATION
     Route: 065
  3. EXELON [Suspect]
     Indication: PRODUCT USED FOR UNKNOWN INDICATION
     Route: 065
  4. ANTIHYPERTENSIVE [Concomitant]

REACTIONS (1)
  - BONE MARROW FAILURE [None]
